FAERS Safety Report 24578761 (Version 1)
Quarter: 2024Q4

REPORT INFORMATION
  Report Type: Report from Study
  Country: US (occurrence: US)
  Receive Date: 20241105
  Receipt Date: 20241105
  Transmission Date: 20250115
  Serious: Yes (Other)
  Sender: ABBVIE
  Company Number: US-ABBVIE-5958079

PATIENT
  Sex: Male

DRUGS (1)
  1. HUMIRA [Suspect]
     Active Substance: ADALIMUMAB
     Indication: Rheumatoid arthritis
     Dosage: CITRATE FREE
     Route: 058
     Dates: start: 20241002

REACTIONS (6)
  - Pseudolymphoma [Unknown]
  - Lymphadenopathy [Unknown]
  - Dry mouth [Unknown]
  - Seasonal allergy [Unknown]
  - Taste disorder [Unknown]
  - Anaemia [Unknown]
